FAERS Safety Report 15754798 (Version 1)
Quarter: 2018Q4

REPORT INFORMATION
  Report Type: Spontaneous
  Country: IT (occurrence: IT)
  Receive Date: 20181224
  Receipt Date: 20181224
  Transmission Date: 20190205
  Serious: Yes (Hospitalization)
  Sender: FDA-Public Use
  Company Number: IT-TEVA-2018-IT-989962

PATIENT
  Age: 45 Year
  Sex: Female
  Weight: 61 kg

DRUGS (8)
  1. EUTIROX [Concomitant]
     Active Substance: LEVOTHYROXINE SODIUM
  2. CARDICOR [Concomitant]
     Active Substance: BISOPROLOL
  3. LASIX [Concomitant]
     Active Substance: FUROSEMIDE
  4. FLUOROURACIL. [Suspect]
     Active Substance: FLUOROURACIL
     Indication: ADENOCARCINOMA GASTRIC
     Route: 042
     Dates: start: 20170904, end: 20180326
  5. DECADRON [Concomitant]
     Active Substance: DEXAMETHASONE
  6. LEVOLEUCOVORIN. [Concomitant]
     Active Substance: LEVOLEUCOVORIN
     Indication: ADENOCARCINOMA GASTRIC
     Route: 042
     Dates: start: 20170904, end: 20180326
  7. DELTACORTENE [Concomitant]
     Active Substance: PREDNISONE
  8. TRIMETON [Concomitant]
     Active Substance: CHLORPHENIRAMINE MALEATE

REACTIONS (2)
  - Dyspnoea [Recovering/Resolving]
  - Pleural effusion [Recovering/Resolving]

NARRATIVE: CASE EVENT DATE: 20171024
